FAERS Safety Report 9247756 (Version 2)
Quarter: 2013Q2

REPORT INFORMATION
  Report Type: Spontaneous
  Country: GB (occurrence: GB)
  Receive Date: 20130423
  Receipt Date: 20130429
  Transmission Date: 20140414
  Serious: Yes (Other)
  Sender: FDA-Public Use
  Company Number: GB-PFIZER INC-2013121783

PATIENT
  Age: 34 Year
  Sex: Male
  Weight: 160 kg

DRUGS (1)
  1. LUSTRAL [Suspect]
     Indication: DEPRESSION
     Dosage: 50 MG, UNK
     Route: 048
     Dates: start: 20130401, end: 20130409

REACTIONS (7)
  - Product substitution issue [Unknown]
  - Confusional state [Unknown]
  - Anxiety [Unknown]
  - Feeling abnormal [Unknown]
  - Insomnia [Unknown]
  - Inappropriate affect [Unknown]
  - Flat affect [Unknown]
